FAERS Safety Report 18587960 (Version 1)
Quarter: 2020Q4

REPORT INFORMATION
  Report Type: Spontaneous
  Country: FR (occurrence: FR)
  Receive Date: 20201207
  Receipt Date: 20201207
  Transmission Date: 20210114
  Serious: Yes (Hospitalization)
  Sender: FDA-Public Use
  Company Number: FR-CELGENEUS-FRA-20201200712

PATIENT
  Age: 63 Year
  Sex: Male
  Weight: 63 kg

DRUGS (1)
  1. VIDAZA [Suspect]
     Active Substance: AZACITIDINE
     Indication: MYELODYSPLASTIC SYNDROME TRANSFORMATION
     Route: 058
     Dates: start: 20200818, end: 20201110

REACTIONS (5)
  - Injection site pain [Recovered/Resolved]
  - Injection site cellulitis [Recovered/Resolved]
  - Pancytopenia [Recovering/Resolving]
  - Injection site inflammation [Recovered/Resolved]
  - Injection site erythema [Recovered/Resolved]

NARRATIVE: CASE EVENT DATE: 20201110
